FAERS Safety Report 14095050 (Version 1)
Quarter: 2017Q4

REPORT INFORMATION
  Report Type: Spontaneous
  Country: US (occurrence: US)
  Receive Date: 20171016
  Receipt Date: 20171016
  Transmission Date: 20180321
  Serious: No
  Sender: FDA-Public Use
  Company Number: US-NOVOPROD-556202

PATIENT
  Age: 70 Year
  Sex: Male

DRUGS (8)
  1. TRESIBA FLEXTOUCH U200 [Suspect]
     Active Substance: INSULIN DEGLUDEC
     Dosage: 34 U, QD
     Route: 058
     Dates: start: 20170701, end: 2017
  2. TRESIBA FLEXTOUCH U200 [Suspect]
     Active Substance: INSULIN DEGLUDEC
     Indication: TYPE 2 DIABETES MELLITUS
     Dosage: 14 U, QD
     Route: 058
     Dates: start: 20170626, end: 2017
  3. TRESIBA FLEXTOUCH U200 [Suspect]
     Active Substance: INSULIN DEGLUDEC
     Dosage: 22 U, QD
     Route: 058
     Dates: start: 2017, end: 2017
  4. TRESIBA FLEXTOUCH U200 [Suspect]
     Active Substance: INSULIN DEGLUDEC
     Dosage: 18 U, QD
     Route: 058
     Dates: start: 2017, end: 2017
  5. TRESIBA FLEXTOUCH U200 [Suspect]
     Active Substance: INSULIN DEGLUDEC
     Dosage: 26 U, QD
     Route: 058
     Dates: start: 2017, end: 2017
  6. TRESIBA FLEXTOUCH U200 [Suspect]
     Active Substance: INSULIN DEGLUDEC
     Dosage: 70 U, QD
     Route: 058
     Dates: start: 2017, end: 20170720
  7. TRESIBA FLEXTOUCH U200 [Suspect]
     Active Substance: INSULIN DEGLUDEC
     Dosage: INCREASED DOSE 4 UNITS EVERY DAY
     Route: 058
     Dates: start: 2017, end: 2017
  8. TRESIBA FLEXTOUCH U200 [Suspect]
     Active Substance: INSULIN DEGLUDEC
     Dosage: 60 U, QD
     Route: 058
     Dates: start: 2017, end: 2017

REACTIONS (4)
  - Drug ineffective [Not Recovered/Not Resolved]
  - Intentional dose omission [Recovered/Resolved]
  - Blood glucose increased [Not Recovered/Not Resolved]
  - Product use issue [Not Recovered/Not Resolved]

NARRATIVE: CASE EVENT DATE: 2017
